FAERS Safety Report 10225060 (Version 1)
Quarter: 2014Q2

REPORT INFORMATION
  Report Type: Spontaneous
  Country: US (occurrence: US)
  Receive Date: 20140609
  Receipt Date: 20140609
  Transmission Date: 20141212
  Serious: Yes (Other)
  Sender: FDA-Public Use
  Company Number: US-ASTRAZENECA-2014SE38647

PATIENT
  Age: 50 Year
  Sex: Male

DRUGS (2)
  1. ZOLADEX [Suspect]
     Indication: PROSTATE CANCER
     Dosage: 2 ROUNDS OF THE ZOLADEX 10.8 MG IMPLANT
     Route: 058
  2. ZOLADEX [Suspect]
     Indication: PROSTATE CANCER
     Dosage: THIRD INJECTION
     Route: 058

REACTIONS (1)
  - Malignant neoplasm progression [Unknown]
